FAERS Safety Report 5350500-5 (Version None)
Quarter: 2007Q2

REPORT INFORMATION
  Report Type: 
  Country: None (occurrence: None)
  Receive Date: 20070606
  Receipt Date: 20070521
  Transmission Date: 20071010
  Serious: Yes (Hospitalization, Other)
  Sender: FDA-Public Use
  Company Number: 2006BI017622

PATIENT
  Age: 23 Year
  Sex: Female

DRUGS (1)
  1. AVONEX [Suspect]
     Indication: MULTIPLE SCLEROSIS
     Dosage: 30 UG;QW;IM
     Route: 030
     Dates: start: 20040715, end: 20060331

REACTIONS (12)
  - ASCITES [None]
  - DRUG EXPOSURE BEFORE PREGNANCY [None]
  - DRUG EXPOSURE DURING PREGNANCY [None]
  - GALLBLADDER DISORDER [None]
  - HAEMATOCRIT DECREASED [None]
  - HEPATIC HAEMATOMA [None]
  - HYDRONEPHROSIS [None]
  - LOCALISED INTRAABDOMINAL FLUID COLLECTION [None]
  - PREGNANCY [None]
  - PREMATURE LABOUR [None]
  - RASH [None]
  - WHITE BLOOD CELL COUNT INCREASED [None]
